FAERS Safety Report 19416269 (Version 1)
Quarter: 2021Q2

REPORT INFORMATION
  Report Type: Spontaneous
  Country: DK (occurrence: DK)
  Receive Date: 20210615
  Receipt Date: 20210615
  Transmission Date: 20210717
  Serious: Yes (Hospitalization)
  Sender: FDA-Public Use
  Company Number: DK-ABBVIE-21K-044-3949199-00

PATIENT
  Age: 21 Year
  Sex: Female

DRUGS (3)
  1. ANASTRELLA 28 [Concomitant]
     Indication: CONTRACEPTION
     Dates: start: 20180905
  2. AMGEVITA [Suspect]
     Active Substance: ADALIMUMAB
     Indication: HIDRADENITIS
     Dosage: STRENGTH: 40 MG.
     Route: 065
     Dates: start: 20210406, end: 20210421
  3. ADALIMUMAB [Suspect]
     Active Substance: ADALIMUMAB
     Indication: HIDRADENITIS
     Route: 058
     Dates: start: 2018, end: 20210406

REACTIONS (1)
  - Thrombophlebitis [Unknown]

NARRATIVE: CASE EVENT DATE: 20210417
